FAERS Safety Report 8537600-3 (Version None)
Quarter: 2012Q3

REPORT INFORMATION
  Report Type: 
  Country: None (occurrence: None)
  Receive Date: 20120725
  Receipt Date: 20120711
  Transmission Date: 20120928
  Serious: No
  Sender: FDA-Public Use
  Company Number: US-ASTRAZENECA-2011SE41652

PATIENT
  Age: 27 Year
  Sex: Female

DRUGS (1)
  1. NEXIUM [Suspect]
     Route: 048

REACTIONS (9)
  - GASTROOESOPHAGEAL REFLUX DISEASE [None]
  - DRUG DOSE OMISSION [None]
  - PAIN [None]
  - ARTHRALGIA [None]
  - APHAGIA [None]
  - DEPRESSION [None]
  - TOOTHACHE [None]
  - DENTAL CARIES [None]
  - GASTROINTESTINAL PAIN [None]
